FAERS Safety Report 15700281 (Version 2)
Quarter: 2018Q4

REPORT INFORMATION
  Report Type: Report from Study
  Country: US (occurrence: US)
  Receive Date: 20181207
  Receipt Date: 20181217
  Transmission Date: 20190205
  Serious: Yes (Death)
  Sender: FDA-Public Use
  Company Number: US-BAUSCH-BL-2018-034174

PATIENT
  Age: 82 Year
  Sex: Male

DRUGS (1)
  1. XIFAXAN [Suspect]
     Active Substance: RIFAXIMIN
     Indication: HEPATIC ENCEPHALOPATHY
     Route: 048
     Dates: end: 201811

REACTIONS (5)
  - Dysphagia [Unknown]
  - Hypertension [Fatal]
  - Hospice care [Unknown]
  - Hepatic cirrhosis [Fatal]
  - Coronary artery disease [Fatal]

NARRATIVE: CASE EVENT DATE: 201811
